FAERS Safety Report 7983268-4 (Version None)
Quarter: 2011Q4

REPORT INFORMATION
  Report Type: 
  Country: None (occurrence: None)
  Receive Date: 20111215
  Receipt Date: 20111209
  Transmission Date: 20120403
  Serious: Yes (Hospitalization)
  Sender: FDA-Public Use
  Company Number: IT-ELI_LILLY_AND_COMPANY-IT201112002421

PATIENT
  Sex: Male

DRUGS (3)
  1. ALIMTA [Suspect]
     Indication: LUNG ADENOCARCINOMA METASTATIC
     Dosage: UNK, UNKNOWN
     Dates: start: 20111028, end: 20111118
  2. CISPLATIN [Concomitant]
  3. EMEND [Concomitant]

REACTIONS (2)
  - BRONCHOSPASM [None]
  - DYSPNOEA [None]
